FAERS Safety Report 8881883 (Version 1)
Quarter: 2012Q4

REPORT INFORMATION
  Report Type: 
  Country: KR (occurrence: KR)
  Receive Date: 20121105
  Receipt Date: 20121105
  Transmission Date: 20130627
  Serious: Yes (Death)
  Sender: FDA-Public Use
  Company Number: KR-JNJFOC-20121014835

PATIENT
  Sex: Female

DRUGS (1)
  1. DUROGESIC D-TRANS [Suspect]
     Indication: PAIN
     Dosage: 4 x 100 ug/hr patch
     Route: 062

REACTIONS (5)
  - Cardiac arrest [Fatal]
  - Accidental exposure to product [Unknown]
  - Drug administered at inappropriate site [Recovered/Resolved]
  - Dyspnoea [Not Recovered/Not Resolved]
  - Fall [Not Recovered/Not Resolved]
